FAERS Safety Report 20357569 (Version 2)
Quarter: 2022Q1

REPORT INFORMATION
  Report Type: Spontaneous
  Country: AT (occurrence: AT)
  Receive Date: 20220120
  Receipt Date: 20220203
  Transmission Date: 20220423
  Serious: Yes (Other)
  Sender: FDA-Public Use
  Company Number: AT-TEVA-2022-AT-1999073

PATIENT
  Age: 68 Year
  Sex: Female

DRUGS (6)
  1. IMATINIB [Suspect]
     Active Substance: IMATINIB
     Indication: Chloroma
     Dosage: 400 MILLIGRAM DAILY;
     Route: 065
  2. DASATINIB [Suspect]
     Active Substance: DASATINIB
     Indication: Chloroma
     Dosage: 100 MILLIGRAM DAILY;
     Route: 065
  3. DASATINIB [Suspect]
     Active Substance: DASATINIB
     Dosage: 50 MILLIGRAM DAILY;
     Route: 065
  4. BOSUTINIB [Suspect]
     Active Substance: BOSUTINIB
     Indication: Chloroma
     Dosage: 400 MILLIGRAM DAILY;
     Route: 065
  5. PONATINIB [Suspect]
     Active Substance: PONATINIB
     Indication: Chloroma
     Dosage: 45 MILLIGRAM DAILY;
     Route: 065
  6. PALBOCICLIB [Suspect]
     Active Substance: PALBOCICLIB
     Indication: Chloroma
     Dosage: 125 MILLIGRAM DAILY;
     Route: 065

REACTIONS (7)
  - Dysgeusia [Unknown]
  - Nausea [Unknown]
  - Pleural effusion [Unknown]
  - Tachycardia [Unknown]
  - Oedema [Unknown]
  - Neutropenia [Recovered/Resolved]
  - Drug resistance [Unknown]
